FAERS Safety Report 8508463-7 (Version None)
Quarter: 2012Q3

REPORT INFORMATION
  Report Type: 
  Country: None (occurrence: None)
  Receive Date: 20120713
  Receipt Date: 20120710
  Transmission Date: 20120928
  Serious: Yes (Hospitalization, Other)
  Sender: FDA-Public Use
  Company Number: US-BAYER-2012-061380

PATIENT
  Age: 25 Year
  Sex: Female
  Weight: 63.492 kg

DRUGS (7)
  1. REGLAN [Concomitant]
     Dosage: EVERY 6 HOURS
     Route: 048
  2. OMEPRAZOLE [Concomitant]
     Route: 048
  3. TRAMADOL HCL [Concomitant]
     Dosage: EVERY 6 HOURS AS NEEDED
     Route: 048
  4. DROSPIRENONE AND ETHINYL ESTRADIOL [Suspect]
     Indication: CONTRACEPTION
     Dosage: UNK
     Dates: start: 20090701, end: 20090801
  5. PROMETHAZINE [Concomitant]
     Dosage: EVERY 6 HOURS
     Route: 048
  6. YASMIN [Suspect]
     Indication: CONTRACEPTION
     Dosage: UNK
     Dates: start: 20090701, end: 20110407
  7. ULTRAM [Concomitant]

REACTIONS (3)
  - BILE DUCT STONE [None]
  - GALLBLADDER DISORDER [None]
  - CHOLECYSTITIS CHRONIC [None]
